FAERS Safety Report 6357836-X (Version None)
Quarter: 2009Q3

REPORT INFORMATION
  Report Type: 
  Country: None (occurrence: None)
  Receive Date: 20090916
  Receipt Date: 20090419
  Transmission Date: 20100115
  Serious: Yes (Life-Threatening)
  Sender: FDA-Public Use
  Company Number: PHEH2009US10915

PATIENT
  Sex: Female

DRUGS (1)
  1. RECLAST [Suspect]
     Dosage: UNK
     Dates: start: 20090417, end: 20090417

REACTIONS (7)
  - FEELING ABNORMAL [None]
  - FEELING COLD [None]
  - HEADACHE [None]
  - NAUSEA [None]
  - PAIN [None]
  - PYREXIA [None]
  - UNEVALUABLE EVENT [None]
